FAERS Safety Report 6426168-3 (Version None)
Quarter: 2009Q4

REPORT INFORMATION
  Report Type: 
  Country: None (occurrence: None)
  Receive Date: 20091030
  Receipt Date: 20091022
  Transmission Date: 20100525
  Serious: Yes (Hospitalization, Other)
  Sender: FDA-Public Use
  Company Number: 2009AL006782

PATIENT
  Sex: Female
  Weight: 2.09 kg

DRUGS (2)
  1. FLUOXETINE [Suspect]
     Dosage: 20 MG;QD;TRPL
     Route: 064
  2. DIAZEPAM TAB [Suspect]
     Dosage: 10 MG; TRPL
     Route: 064

REACTIONS (12)
  - AGITATION NEONATAL [None]
  - CAESAREAN SECTION [None]
  - DRUG EXPOSURE VIA BREAST MILK [None]
  - DRUG WITHDRAWAL SYNDROME [None]
  - FEEDING DISORDER NEONATAL [None]
  - HYPERTONIA NEONATAL [None]
  - MATERNAL DRUGS AFFECTING FOETUS [None]
  - MENTAL RETARDATION [None]
  - MICROCEPHALY [None]
  - OCULOGYRIC CRISIS [None]
  - STRABISMUS CONGENITAL [None]
  - VOMITING NEONATAL [None]
